FAERS Safety Report 20066849 (Version 1)
Quarter: 2021Q4

REPORT INFORMATION
  Report Type: Spontaneous
  Country: BR (occurrence: BR)
  Receive Date: 20211115
  Receipt Date: 20211115
  Transmission Date: 20220304
  Serious: Yes (Hospitalization, Other)
  Sender: FDA-Public Use
  Company Number: BR-NOVOPROD-863887

PATIENT
  Age: 9 Year
  Sex: Female
  Weight: 26.5 kg

DRUGS (3)
  1. TRESIBA [Suspect]
     Active Substance: INSULIN DEGLUDEC
     Dosage: 11 IU
     Route: 065
     Dates: start: 202009
  2. TRESIBA [Suspect]
     Active Substance: INSULIN DEGLUDEC
     Indication: Type 1 diabetes mellitus
     Dosage: 12 IU
     Route: 065
     Dates: start: 201606
  3. INSULIN LISPRO [Concomitant]
     Active Substance: INSULIN LISPRO
     Dosage: 12 IU, QD
     Route: 065

REACTIONS (6)
  - Pneumonia [Unknown]
  - Upper limb fracture [Unknown]
  - Arthritis bacterial [Unknown]
  - Osteomyelitis [Unknown]
  - Hyperglycaemia [Unknown]
  - Hypoglycaemia [Unknown]

NARRATIVE: CASE EVENT DATE: 20160601
